FAERS Safety Report 5744725-4 (Version None)
Quarter: 2008Q2

REPORT INFORMATION
  Report Type: 
  Country: None (occurrence: None)
  Receive Date: 20080516
  Receipt Date: 20080501
  Transmission Date: 20081010
  Serious: Yes (Other)
  Sender: FDA-Public Use
  Company Number: SPV1-2008-00973

PATIENT
  Age: 36 Year
  Sex: Female
  Weight: 69.4 kg

DRUGS (2)
  1. LIALDA [Suspect]
     Indication: COLITIS ULCERATIVE
     Dosage: 2.4 G DAILY, ORAL,  1.2 G, 1X/DAY: QD, ORAL
     Route: 048
     Dates: start: 20080421, end: 20080427
  2. LIALDA [Suspect]
     Indication: COLITIS ULCERATIVE
     Dosage: 2.4 G DAILY, ORAL,  1.2 G, 1X/DAY: QD, ORAL
     Route: 048
     Dates: start: 20080428

REACTIONS (3)
  - ABDOMINAL PAIN [None]
  - CHROMATURIA [None]
  - DIARRHOEA [None]
